FAERS Safety Report 9026011 (Version 2)
Quarter: 2013Q1

REPORT INFORMATION
  Report Type: Spontaneous
  Country: US (occurrence: US)
  Receive Date: 20130122
  Receipt Date: 20130322
  Transmission Date: 20140127
  Serious: Yes (Hospitalization)
  Sender: FDA-Public Use
  Company Number: US-PFIZER INC-2013024425

PATIENT
  Age: 70 Year
  Sex: Female
  Weight: 93.42 kg

DRUGS (1)
  1. LIPITOR [Suspect]
     Indication: BLOOD CHOLESTEROL INCREASED
     Dosage: 40 MG, DAILY

REACTIONS (11)
  - Cardiac disorder [Unknown]
  - Hypotension [Unknown]
  - Weight decreased [Unknown]
  - Oropharyngeal pain [Unknown]
  - Sinusitis [Unknown]
  - Malaise [Unknown]
  - Nausea [Unknown]
  - Dizziness [Unknown]
  - Diarrhoea [Unknown]
  - Vomiting [Unknown]
  - Eating disorder [Unknown]
